FAERS Safety Report 25095433 (Version 2)
Quarter: 2025Q1

REPORT INFORMATION
  Report Type: Spontaneous
  Country: CN (occurrence: CN)
  Receive Date: 20250319
  Receipt Date: 20250327
  Transmission Date: 20250409
  Serious: Yes (Hospitalization, Disabling, Other)
  Sender: PFIZER
  Company Number: CN-PFIZER INC-202500057436

PATIENT
  Sex: Male

DRUGS (4)
  1. XYNTHA [Suspect]
     Active Substance: MOROCTOCOG ALFA
     Indication: Haemophilia
     Dates: start: 202501
  2. XYNTHA [Suspect]
     Active Substance: MOROCTOCOG ALFA
     Dates: start: 2025
  3. XYNTHA [Suspect]
     Active Substance: MOROCTOCOG ALFA
     Dates: start: 2025
  4. XYNTHA [Suspect]
     Active Substance: MOROCTOCOG ALFA
     Dates: start: 2025

REACTIONS (14)
  - Mouth haemorrhage [Unknown]
  - Haemarthrosis [Unknown]
  - Gastrointestinal haemorrhage [Unknown]
  - Abdominal pain [Unknown]
  - Anti factor VIII antibody increased [Unknown]
  - Haemorrhage [Unknown]
  - Vomiting [Unknown]
  - Arthralgia [Recovering/Resolving]
  - Joint swelling [Unknown]
  - Erythema [Unknown]
  - Physical disability [Unknown]
  - Heart rate increased [Unknown]
  - Palpitations [Unknown]
  - Pain [Unknown]

NARRATIVE: CASE EVENT DATE: 20250101
